FAERS Safety Report 4476533-9 (Version None)
Quarter: 2004Q4

REPORT INFORMATION
  Report Type: 
  Country: None (occurrence: None)
  Receive Date: 20041013
  Receipt Date: 20041001
  Transmission Date: 20050328
  Serious: Yes (Disabling, Other)
  Sender: FDA-Public Use
  Company Number: 2004010780

PATIENT
  Age: 69 Year
  Sex: Male
  Weight: 95.2554 kg

DRUGS (8)
  1. LIPITOR [Suspect]
     Indication: BLOOD CHOLESTEROL INCREASED
     Dosage: 10 MG (DAILY)
     Dates: start: 20011016, end: 20020301
  2. HYZAAR [Suspect]
     Indication: HYPERTENSION
     Dosage: (DAILY), ORAL
     Route: 048
     Dates: start: 19980807
  3. NEURONTIN [Suspect]
     Indication: ILL-DEFINED DISORDER
     Dosage: 300 MG ,ORAL
     Route: 048
     Dates: start: 20020404, end: 20020404
  4. INFLUENZA VACCINE (INFLUENZA VACCINE) [Concomitant]
  5. ALL OTHER THERAPEUTIC PRODUCTS (ALL OTHER THERAPEUTIC PRODUCTS) [Concomitant]
  6. VICODIN [Concomitant]
  7. ASPIRIN [Concomitant]
  8. AMLODIPINE BESYLATE [Concomitant]

REACTIONS (46)
  - ACTINIC KERATOSIS [None]
  - ALDOLASE INCREASED [None]
  - ANHEDONIA [None]
  - ARTHRALGIA [None]
  - ASTHENIA [None]
  - BLOOD CREATININE INCREASED [None]
  - BLOOD GLUCOSE INCREASED [None]
  - BLOOD POTASSIUM INCREASED [None]
  - BLOOD SODIUM INCREASED [None]
  - BLOOD URINE PRESENT [None]
  - BUNDLE BRANCH BLOCK LEFT [None]
  - DIFFICULTY IN WALKING [None]
  - DIVERTICULUM [None]
  - DRUG HYPERSENSITIVITY [None]
  - EMOTIONAL DISORDER [None]
  - FATIGUE [None]
  - FEELING COLD [None]
  - FLUSHING [None]
  - HEAD INJURY [None]
  - HYPERHIDROSIS [None]
  - INSOMNIA [None]
  - JOINT CREPITATION [None]
  - JOINT RANGE OF MOTION DECREASED [None]
  - KYPHOSIS [None]
  - LOW DENSITY LIPOPROTEIN INCREASED [None]
  - MENTAL DISORDER [None]
  - MUSCLE ATROPHY [None]
  - MUSCLE CRAMP [None]
  - MUSCULAR WEAKNESS [None]
  - MYALGIA [None]
  - MYOPATHY [None]
  - NECK INJURY [None]
  - NERVOUSNESS [None]
  - NEURALGIA [None]
  - NEUROPATHY [None]
  - PAIN [None]
  - PAIN IN EXTREMITY [None]
  - POLYMYOSITIS [None]
  - POLYTRAUMATISM [None]
  - PROSTATIC SPECIFIC ANTIGEN INCREASED [None]
  - PROTEIN URINE PRESENT [None]
  - RECTAL POLYP [None]
  - SPINAL COLUMN STENOSIS [None]
  - TENDERNESS [None]
  - VISUAL ACUITY REDUCED [None]
  - WEIGHT DECREASED [None]
